FAERS Safety Report 11941318 (Version 1)
Quarter: 2016Q1

REPORT INFORMATION
  Report Type: Report from Study
  Country: US (occurrence: US)
  Receive Date: 20160122
  Receipt Date: 20160122
  Transmission Date: 20160526
  Serious: Yes (Hospitalization, Other)
  Sender: FDA-Public Use
  Company Number: US-ABBVIE-16P-163-1540668-00

PATIENT
  Age: 48 Year
  Sex: Female

DRUGS (6)
  1. LUPRON DEPOT [Suspect]
     Active Substance: LEUPROLIDE ACETATE
     Route: 050
     Dates: start: 2003
  2. LUPRON DEPOT [Suspect]
     Active Substance: LEUPROLIDE ACETATE
     Route: 050
     Dates: start: 20130531
  3. GLUCOPHAGE [Concomitant]
     Active Substance: METFORMIN HYDROCHLORIDE
     Indication: DIABETES MELLITUS
     Route: 048
  4. HUMALOG [Concomitant]
     Active Substance: INSULIN LISPRO
     Indication: DIABETES MELLITUS
     Dosage: UNKNOWN DOSE
     Route: 058
     Dates: start: 2002, end: 2003
  5. LYRICA [Concomitant]
     Active Substance: PREGABALIN
     Indication: PAIN
     Dosage: UNKNOWN DOSE
     Route: 048
  6. LUPRON DEPOT [Suspect]
     Active Substance: LEUPROLIDE ACETATE
     Indication: ENDOMETRIOSIS
     Route: 050
     Dates: start: 20150815

REACTIONS (16)
  - Hot flush [Not Recovered/Not Resolved]
  - Coital bleeding [Not Recovered/Not Resolved]
  - Cold sweat [Not Recovered/Not Resolved]
  - Endometriosis [Not Recovered/Not Resolved]
  - Exostosis [Not Recovered/Not Resolved]
  - Lower limb fracture [Recovered/Resolved]
  - Platelet count decreased [Recovering/Resolving]
  - Dyspareunia [Not Recovered/Not Resolved]
  - Mitochondrial myopathy [Unknown]
  - Platelet count decreased [Not Recovered/Not Resolved]
  - Hepatic cirrhosis [Not Recovered/Not Resolved]
  - Cholecystectomy [Recovered/Resolved]
  - Glaucoma [Not Recovered/Not Resolved]
  - Muscle abscess [Recovering/Resolving]
  - Muscle abscess [Unknown]
  - Vulvovaginal dryness [Not Recovered/Not Resolved]

NARRATIVE: CASE EVENT DATE: 2010
